FAERS Safety Report 23692907 (Version 1)
Quarter: 2024Q2

REPORT INFORMATION
  Report Type: Spontaneous
  Country: US (occurrence: US)
  Receive Date: 20240401
  Receipt Date: 20240401
  Transmission Date: 20240717
  Serious: No
  Sender: FDA-Public Use
  Company Number: US-SANOFI-01991075

PATIENT
  Age: 68 Year
  Sex: Male

DRUGS (1)
  1. LANTUS SOLOSTAR [Suspect]
     Active Substance: INSULIN GLARGINE
     Indication: Type 2 diabetes mellitus
     Dosage: (BETWEEN 16 OR 18 TO 22 UNITS AT NIGHT, DEPENDING ON HIS GLUCOSE LEVELS), HS

REACTIONS (2)
  - Hypoglycaemia [Unknown]
  - Therapeutic response decreased [Unknown]
